FAERS Safety Report 4674226-6 (Version None)
Quarter: 2005Q2

REPORT INFORMATION
  Report Type: 
  Country: None (occurrence: None)
  Receive Date: 20050524
  Receipt Date: 20050511
  Transmission Date: 20051028
  Serious: Yes (Hospitalization, Other)
  Sender: FDA-Public Use
  Company Number: US_000643518

PATIENT
  Age: 67 Year
  Sex: Male
  Weight: 80 kg

DRUGS (15)
  1. HUMULIN U [Suspect]
     Indication: DIABETES MELLITUS
     Dosage: 15 U/2 DAY
     Dates: start: 19990101
  2. HUMALOG [Suspect]
     Indication: DIABETES MELLITUS
     Dates: start: 19990101, end: 20000201
  3. ACCUPRIL [Concomitant]
  4. ASPIRIN [Concomitant]
  5. LANTUS [Concomitant]
  6. NOVOLOG [Concomitant]
  7. NOVOLIN R [Concomitant]
  8. SYNTHROID [Concomitant]
  9. METOPROLOL [Concomitant]
  10. ZOCOR (SIMVASTATIN RATIOPHARM) [Concomitant]
  11. AVAPRO [Concomitant]
  12. PLAVIX [Concomitant]
  13. IMDUR [Concomitant]
  14. MULTIVITAMINS NOS (MULTIVITAMINS NOS) [Concomitant]
  15. NITROGLYCERIN [Concomitant]

REACTIONS (9)
  - BLOOD CREATINE PHOSPHOKINASE INCREASED [None]
  - DIABETIC NEPHROPATHY [None]
  - DIABETIC NEUROPATHY [None]
  - HYPERGLYCAEMIA [None]
  - HYPOGLYCAEMIA [None]
  - MYOCARDIAL INFARCTION [None]
  - NAUSEA [None]
  - PHYSICAL EXAMINATION ABNORMAL [None]
  - PILOERECTION [None]
